FAERS Safety Report 23509543 (Version 2)
Quarter: 2024Q1

REPORT INFORMATION
  Report Type: Report from Study
  Country: BR (occurrence: BR)
  Receive Date: 20240210
  Receipt Date: 20240311
  Transmission Date: 20240409
  Serious: No
  Sender: FDA-Public Use
  Company Number: BR-ABBVIE-5629729

PATIENT
  Age: 42 Year
  Sex: Male
  Weight: 78 kg

DRUGS (2)
  1. SKYRIZI [Suspect]
     Active Substance: RISANKIZUMAB-RZAA
     Indication: Psoriasis
     Dosage: FORM STRENGTH: 75 MILLIGRAM
     Route: 058
  2. SKYRIZI [Suspect]
     Active Substance: RISANKIZUMAB-RZAA
     Route: 058

REACTIONS (16)
  - Inflammation of wound [Unknown]
  - Arthralgia [Unknown]
  - Urinary tract infection [Recovered/Resolved]
  - Rash [Unknown]
  - Headache [Recovering/Resolving]
  - Malaise [Recovering/Resolving]
  - Limb injury [Recovering/Resolving]
  - Skin discomfort [Unknown]
  - Blister infected [Recovering/Resolving]
  - Nail injury [Recovering/Resolving]
  - Wound [Recovering/Resolving]
  - Skin fissures [Recovering/Resolving]
  - Inflammation [Recovering/Resolving]
  - Psoriasis [Recovering/Resolving]
  - Purulence [Recovering/Resolving]
  - Accident at work [Unknown]

NARRATIVE: CASE EVENT DATE: 20231222
